FAERS Safety Report 10956125 (Version 3)
Quarter: 2015Q2

REPORT INFORMATION
  Report Type: Spontaneous
  Country: ES (occurrence: None)
  Receive Date: 20150324
  Receipt Date: 20150420
  Transmission Date: 20150821
  Serious: Yes (Other)
  Sender: FDA-Public Use
  Company Number: 20150720

PATIENT
  Age: 64 Year
  Sex: Female

DRUGS (6)
  1. IXIA PLUS/OLMESARTAN MEDOXOMIL/HYDROCHLOROTHIAZIDE [Concomitant]
  2. VICSOFRESH / CARMELLOSE SODIUM [Concomitant]
  3. FOLIC ACID. [Concomitant]
     Active Substance: FOLIC ACID
  4. URBANSON (METHYLPREDNISOLONE) [Concomitant]
  5. OPIREN FLASH (LANSOPRAZOLE) [Concomitant]
  6. METOJECT (METHOTREXATE DISODIUM) [Suspect]
     Active Substance: METHOTREXATE SODIUM
     Indication: RHEUMATOID ARTHRITIS

REACTIONS (5)
  - Disease recurrence [None]
  - Nausea [None]
  - Conjunctival haemorrhage [None]
  - Blood pressure increased [None]
  - Pain [None]

NARRATIVE: CASE EVENT DATE: 201503
